FAERS Safety Report 7943584-9 (Version None)
Quarter: 2011Q4

REPORT INFORMATION
  Report Type: 
  Country: None (occurrence: None)
  Receive Date: 20111128
  Receipt Date: 20111121
  Transmission Date: 20120403
  Serious: Yes (Death, Other)
  Sender: FDA-Public Use
  Company Number: NL-ROXANE LABORATORIES, INC.-2011-RO-00496RO

PATIENT
  Age: 61 Year
  Sex: Male

DRUGS (4)
  1. MORPHINE [Suspect]
     Route: 042
  2. TRAMADOL HCL [Suspect]
     Indication: BONE PAIN
     Dosage: 150 MG
  3. MORPHINE [Suspect]
     Indication: BONE PAIN
     Route: 058
  4. MORPHINE [Suspect]
     Route: 058

REACTIONS (3)
  - TOXICITY TO VARIOUS AGENTS [None]
  - CARDIO-RESPIRATORY ARREST [None]
  - PAIN [None]
